FAERS Safety Report 6879889-2 (Version None)
Quarter: 2010Q3

REPORT INFORMATION
  Report Type: 
  Country: None (occurrence: None)
  Receive Date: 20100727
  Receipt Date: 20100720
  Transmission Date: 20110219
  Serious: No
  Sender: FDA-Public Use
  Company Number: US-ABBOTT-10P-163-0658535-00

PATIENT
  Sex: Female
  Weight: 113.5 kg

DRUGS (1)
  1. SYNTHROID [Suspect]
     Indication: PRODUCT USED FOR UNKNOWN INDICATION
     Dates: start: 20070101, end: 20070101

REACTIONS (3)
  - ANXIETY [None]
  - FORMICATION [None]
  - HYPERSENSITIVITY [None]
